FAERS Safety Report 6404847-1 (Version None)
Quarter: 2009Q4

REPORT INFORMATION
  Report Type: 
  Country: None (occurrence: None)
  Receive Date: 20091018
  Receipt Date: 20091008
  Transmission Date: 20100525
  Serious: Yes (Hospitalization)
  Sender: FDA-Public Use
  Company Number: US-ABBOTT-09P-163-0601498-00

PATIENT
  Sex: Female
  Weight: 72.64 kg

DRUGS (5)
  1. HUMIRA [Suspect]
     Indication: CROHN'S DISEASE
     Route: 058
     Dates: start: 20090225, end: 20090701
  2. HUMIRA [Suspect]
     Route: 058
     Dates: start: 20090701, end: 20090807
  3. COUMADIN [Concomitant]
     Indication: THROMBOSIS PROPHYLAXIS
     Dosage: PER PT/INR
     Route: 048
     Dates: start: 20070101, end: 20090813
  4. COUMADIN [Concomitant]
     Dosage: PER PT/INR
     Route: 048
     Dates: start: 20090901
  5. CALCIUM W/VITAMIN D [Concomitant]
     Indication: MINERAL SUPPLEMENTATION
     Route: 048
     Dates: start: 20090801

REACTIONS (12)
  - ASTHENIA [None]
  - DRUG INEFFECTIVE [None]
  - HAEMOGLOBIN DECREASED [None]
  - HEART RATE INCREASED [None]
  - INTERNATIONAL NORMALISED RATIO FLUCTUATION [None]
  - OEDEMA PERIPHERAL [None]
  - PROTEIN TOTAL DECREASED [None]
  - PROTHROMBIN LEVEL ABNORMAL [None]
  - RED BLOOD CELL COUNT DECREASED [None]
  - VITAMIN D DECREASED [None]
  - WEIGHT DECREASED [None]
  - WHITE BLOOD CELL COUNT DECREASED [None]
